FAERS Safety Report 4823273-X (Version None)
Quarter: 2005Q4

REPORT INFORMATION
  Report Type: 
  Country: None (occurrence: None)
  Receive Date: 20051107
  Receipt Date: 20051026
  Transmission Date: 20060501
  Serious: Yes (Other)
  Sender: FDA-Public Use
  Company Number: 2005146496

PATIENT
  Age: 25 Year
  Sex: Male
  Weight: 60 kg

DRUGS (6)
  1. METHYLPREDNISOLONE SODIUM SUCCINATE [Suspect]
     Indication: SPINAL CORD INJURY
     Dosage: 9300 MG (1 IN 1 D), INTRAVENOUS
     Route: 042
     Dates: start: 20041208, end: 20041209
  2. HALOPERIDOL [Suspect]
     Indication: AGGRESSION
  3. LEVOMEPROMAZINE (LEVOMEPROMAZINE) [Suspect]
     Indication: AGGRESSION
  4. CHLORPROMAZINE [Suspect]
     Indication: AGGRESSION
  5. PIPERACILLIN SODIUM [Concomitant]
  6. LEPETAN                            (BUPRENORPHINE HYDROCHLORIDE) [Concomitant]

REACTIONS (13)
  - AGGRESSION [None]
  - ANXIETY [None]
  - DELIRIUM [None]
  - DRUG INEFFECTIVE [None]
  - ELECTROENCEPHALOGRAM ABNORMAL [None]
  - EXCITABILITY [None]
  - INSOMNIA [None]
  - IRRITABILITY [None]
  - LOGORRHOEA [None]
  - MENTAL DISORDER [None]
  - PHYSICAL ASSAULT [None]
  - PSYCHOMOTOR HYPERACTIVITY [None]
  - PSYCHOTIC DISORDER [None]
